FAERS Safety Report 14282013 (Version 1)
Quarter: 2017Q4

REPORT INFORMATION
  Report Type: Spontaneous
  Country: US (occurrence: US)
  Receive Date: 20171213
  Receipt Date: 20171213
  Transmission Date: 20180321
  Serious: Yes (Other)
  Sender: FDA-Public Use
  Company Number: US-BRISTOL-MYERS SQUIBB COMPANY-BMS-2017-109804

PATIENT
  Age: 58 Year
  Sex: Male

DRUGS (1)
  1. YERVOY [Suspect]
     Active Substance: IPILIMUMAB
     Indication: LYMPHOMA
     Dosage: UNK
     Route: 065

REACTIONS (9)
  - Deafness [Unknown]
  - Visual impairment [Unknown]
  - Eye disorder [Unknown]
  - Pyrexia [Unknown]
  - Cold sweat [Unknown]
  - Insomnia [Unknown]
  - Intraocular pressure increased [Unknown]
  - Product use in unapproved indication [Unknown]
  - Migraine [Unknown]
